FAERS Safety Report 5933656-2 (Version None)
Quarter: 2008Q4

REPORT INFORMATION
  Report Type: 
  Country: None (occurrence: None)
  Receive Date: 20081029
  Receipt Date: 20081015
  Transmission Date: 20090506
  Serious: Yes (Life-Threatening, Hospitalization, Other)
  Sender: FDA-Public Use
  Company Number: CH-BAYER-200816495GPV

PATIENT
  Age: 17 Year
  Sex: Female
  Weight: 46 kg

DRUGS (1)
  1. YASMIN [Suspect]
     Indication: ORAL CONTRACEPTION
     Route: 048

REACTIONS (16)
  - APALLIC SYNDROME [None]
  - AUTONOMIC NERVOUS SYSTEM IMBALANCE [None]
  - CARDIO-RESPIRATORY ARREST [None]
  - COMA [None]
  - DYSARTHRIA [None]
  - DYSPHAGIA [None]
  - EYELID FUNCTION DISORDER [None]
  - HEPATIC FAILURE [None]
  - HYPOXIC ENCEPHALOPATHY [None]
  - POST-ANOXIC MYOCLONUS [None]
  - PULMONARY EMBOLISM [None]
  - QUADRIPARESIS [None]
  - RENAL FAILURE [None]
  - RESTLESSNESS [None]
  - SYNCOPE [None]
  - VERTIGO [None]
